FAERS Safety Report 14767235 (Version 2)
Quarter: 2018Q2

REPORT INFORMATION
  Report Type: Spontaneous
  Country: FR (occurrence: FR)
  Receive Date: 20180417
  Receipt Date: 20180426
  Transmission Date: 20180711
  Serious: Yes (Other)
  Sender: FDA-Public Use
  Company Number: FR-B.I. PHARMACEUTICALS,INC./RIDGEFIELD-2018-BI-019550

PATIENT
  Age: 74 Year
  Sex: Male

DRUGS (4)
  1. AVLOCARDYL [Concomitant]
     Active Substance: PROPRANOLOL HYDROCHLORIDE
     Indication: HYPERTENSION
     Dosage: DOSE: 40
     Route: 065
  2. PRAXBIND [Suspect]
     Active Substance: IDARUCIZUMAB
     Indication: PRODUCT USED FOR UNKNOWN INDICATION
     Route: 065
  3. CANDESARTAN. [Concomitant]
     Active Substance: CANDESARTAN
     Indication: HYPERTENSION
     Dosage: DOSE: 16/12.5
     Route: 065
  4. NICARDIPINE [Concomitant]
     Active Substance: NICARDIPINE
     Indication: HYPERTENSION
     Dosage: DOSE: 50
     Route: 065

REACTIONS (2)
  - Peripheral artery thrombosis [Unknown]
  - Haemorrhagic transformation stroke [Unknown]
